FAERS Safety Report 7633016-2 (Version None)
Quarter: 2011Q3

REPORT INFORMATION
  Report Type: 
  Country: None (occurrence: None)
  Receive Date: 20110725
  Receipt Date: 20110722
  Transmission Date: 20111222
  Serious: Yes (Other)
  Sender: FDA-Public Use
  Company Number: US-PFIZER INC-2011167298

PATIENT
  Sex: Female

DRUGS (8)
  1. PROTONIX [Concomitant]
     Dosage: UNK
  2. ETODOLAC [Concomitant]
     Dosage: UNK
  3. COREG [Concomitant]
     Dosage: 20 MG, UNK
  4. SOLU-MEDROL [Suspect]
     Dosage: 125 MG ONCE A DAY
     Route: 042
     Dates: start: 20110721, end: 20110721
  5. FIORICET [Concomitant]
     Dosage: UNK
  6. MECLIZINE [Concomitant]
     Dosage: UNK
  7. METAXALONE [Concomitant]
     Dosage: UNK
  8. POTASSIUM CHLORIDE [Concomitant]
     Dosage: UNK

REACTIONS (3)
  - PALPITATIONS [None]
  - HYPERTENSION [None]
  - HYPERHIDROSIS [None]
